FAERS Safety Report 19640682 (Version 2)
Quarter: 2021Q3

REPORT INFORMATION
  Report Type: Spontaneous
  Country: US (occurrence: US)
  Receive Date: 20210729
  Receipt Date: 20210809
  Transmission Date: 20211014
  Serious: No
  Sender: FDA-Public Use
  Company Number: US-AMGEN INC.-USASP2021113711

PATIENT
  Age: 38 Year
  Sex: Female
  Weight: 107.15 kg

DRUGS (1)
  1. AIMOVIG [Suspect]
     Active Substance: ERENUMAB-AOOE
     Indication: PRODUCT USED FOR UNKNOWN INDICATION
     Dosage: 70 MG IN ABDOMEN EVERY MONTH, A SECOND DOSE OF AIMOVIG 70MG EVERY TWO WEEKS AS NEEDED.
     Route: 065
     Dates: start: 20191115

REACTIONS (2)
  - Product storage error [Unknown]
  - Off label use [Unknown]

NARRATIVE: CASE EVENT DATE: 20191115
